FAERS Safety Report 10098125 (Version 2)
Quarter: 2014Q3

REPORT INFORMATION
  Report Type: Spontaneous
  Country: JP (occurrence: None)
  Receive Date: 20140421
  Receipt Date: 20140703
  Transmission Date: 20150326
  Serious: Yes (Other)
  Sender: FDA-Public Use
  Company Number: ABR_01590_2014

PATIENT
  Age: 22 Year
  Sex: Female
  Weight: 58 kg

DRUGS (2)
  1. RITODRINE HYDROCHLORIDE [Concomitant]
     Active Substance: RITODRINE HYDROCHLORIDE
  2. ERYTHROMYCIN. [Suspect]
     Active Substance: ERYTHROMYCIN
     Indication: INTRAUTERINE INFECTION
     Route: 048
     Dates: start: 19970417, end: 19970424

REACTIONS (4)
  - Premature rupture of membranes [None]
  - Abortion spontaneous [None]
  - Maternal exposure during pregnancy [None]
  - Oligohydramnios [None]

NARRATIVE: CASE EVENT DATE: 199704
